FAERS Safety Report 5395548-X (Version None)
Quarter: 2007Q3

REPORT INFORMATION
  Report Type: 
  Country: None (occurrence: None)
  Receive Date: 20070724
  Receipt Date: 20070713
  Transmission Date: 20080115
  Serious: Yes (Other)
  Sender: FDA-Public Use
  Company Number: FR-SANOFI-SYNTHELABO-A02200702150

PATIENT
  Sex: Male

DRUGS (3)
  1. ELOXATIN [Suspect]
     Indication: METASTASES TO LIVER
     Route: 013
     Dates: start: 20070424, end: 20070424
  2. ZOLPIDEM TARTRATE [Concomitant]
     Route: 048
  3. TOMUDEX [Suspect]
     Indication: METASTASES TO LIVER
     Route: 013
     Dates: start: 20070424, end: 20070424

REACTIONS (6)
  - ABDOMINAL PAIN [None]
  - CHEST PAIN [None]
  - CYTOKINE RELEASE SYNDROME [None]
  - HYPERTENSION [None]
  - PYREXIA [None]
  - RALES [None]
